FAERS Safety Report 4788528-6 (Version None)
Quarter: 2005Q3

REPORT INFORMATION
  Report Type: 
  Country: None (occurrence: None)
  Receive Date: 20050915
  Receipt Date: 20050518
  Transmission Date: 20060218
  Serious: No
  Sender: FDA-Public Use
  Company Number: BDI-007212

PATIENT
  Sex: Female
  Weight: 50 kg

DRUGS (2)
  1. MULTIHANCE [Suspect]
     Indication: ABDOMINAL DISTENSION
     Dosage: 20 ML ONCE IV
     Route: 042
     Dates: start: 20050518, end: 20050518
  2. MULTIHANCE [Suspect]
     Indication: NUCLEAR MAGNETIC RESONANCE IMAGING ABDOMINAL
     Dosage: 20 ML ONCE IV
     Route: 042
     Dates: start: 20050518, end: 20050518

REACTIONS (4)
  - BRADYCARDIA [None]
  - DIZZINESS [None]
  - HYPOTENSION [None]
  - PALLOR [None]
